FAERS Safety Report 8560419-4 (Version None)
Quarter: 2012Q3

REPORT INFORMATION
  Report Type: 
  Country: None (occurrence: None)
  Receive Date: 20120802
  Receipt Date: 20120725
  Transmission Date: 20120928
  Serious: Yes (Other)
  Sender: FDA-Public Use
  Company Number: JP-VERTEX PHARMACEUTICALS INC.-AE-2012-011119

PATIENT
  Age: 60 Year
  Sex: Male

DRUGS (24)
  1. REBETOL [Concomitant]
     Indication: HEPATITIS C
     Route: 048
     Dates: start: 20120321, end: 20120331
  2. GLYCYRON [Concomitant]
     Route: 048
     Dates: end: 20120502
  3. LANSOPRAZOLE [Concomitant]
     Route: 048
     Dates: end: 20120401
  4. MESITAT [Concomitant]
     Route: 048
  5. TELAVIC (TELAPREVIR) [Suspect]
     Indication: HEPATITIS C
     Route: 048
     Dates: start: 20120321, end: 20120424
  6. ROHYPNOL [Concomitant]
     Route: 048
     Dates: start: 20120411
  7. PEGINTERFERON ALFA-2B [Concomitant]
     Indication: HEPATITIS C
     Route: 058
     Dates: start: 20120321
  8. KOTAROMA [Concomitant]
     Route: 048
  9. NAPROXEN [Concomitant]
     Route: 048
     Dates: start: 20120326
  10. LANSOPRAZOLE [Concomitant]
     Route: 048
     Dates: start: 20120402
  11. LULICON [Concomitant]
     Route: 061
     Dates: start: 20120404, end: 20120404
  12. LUDIOMIL [Concomitant]
     Route: 048
     Dates: start: 20120426
  13. TELAVIC (TELAPREVIR) [Suspect]
     Route: 048
     Dates: start: 20120425
  14. GASMOTIN [Concomitant]
     Route: 048
  15. NAPROXEN [Concomitant]
     Route: 048
     Dates: start: 20120323, end: 20120325
  16. NEUOMIL [Concomitant]
     Route: 048
     Dates: end: 20120425
  17. URSO 250 [Concomitant]
     Route: 048
     Dates: start: 20120502
  18. TELAVIC (TELAPREVIR) [Suspect]
     Route: 048
     Dates: start: 20120612, end: 20120613
  19. BIBITTOACE [Concomitant]
     Route: 048
     Dates: end: 20120410
  20. BASACOLIN [Concomitant]
     Route: 048
     Dates: start: 20120322
  21. PURSENNID [Concomitant]
     Route: 048
     Dates: start: 20120328, end: 20120401
  22. REBETOL [Concomitant]
     Route: 048
     Dates: start: 20120401, end: 20120424
  23. REBETOL [Concomitant]
     Route: 048
     Dates: start: 20120425
  24. TAMSULOSIN HCL [Concomitant]
     Route: 048
     Dates: start: 20120322

REACTIONS (8)
  - NEUTROPHIL COUNT DECREASED [None]
  - BLOOD CREATINE INCREASED [None]
  - HAEMOGLOBIN DECREASED [None]
  - HYPERURICAEMIA [None]
  - ERYTHEMA [None]
  - WHITE BLOOD CELL COUNT DECREASED [None]
  - DYSGEUSIA [None]
  - RASH [None]
